FAERS Safety Report 14351291 (Version 1)
Quarter: 2018Q1

REPORT INFORMATION
  Report Type: Spontaneous
  Country: SG (occurrence: SG)
  Receive Date: 20180104
  Receipt Date: 20180104
  Transmission Date: 20180509
  Serious: Yes (Death, Life-Threatening, Hospitalization)
  Sender: FDA-Public Use
  Company Number: SG-JNJFOC-20180102071

PATIENT
  Age: 75 Year
  Sex: Male

DRUGS (2)
  1. IBRUTINIB [Suspect]
     Active Substance: IBRUTINIB
     Indication: MANTLE CELL LYMPHOMA
     Route: 048
     Dates: start: 20170815, end: 20171114
  2. IBRUTINIB [Suspect]
     Active Substance: IBRUTINIB
     Indication: CHRONIC LYMPHOCYTIC LEUKAEMIA TRANSFORMATION
     Route: 048
     Dates: start: 20170815, end: 20171114

REACTIONS (7)
  - Neutropenic sepsis [Unknown]
  - Respiratory failure [Unknown]
  - Bronchopulmonary aspergillosis [Unknown]
  - Myocardial infarction [Unknown]
  - Pneumonia [Fatal]
  - Atrial fibrillation [Unknown]
  - Subdural haemorrhage [Unknown]

NARRATIVE: CASE EVENT DATE: 20171114
